FAERS Safety Report 6590427-4 (Version None)
Quarter: 2010Q1

REPORT INFORMATION
  Report Type: 
  Country: None (occurrence: None)
  Receive Date: 20100219
  Receipt Date: 20100208
  Transmission Date: 20100710
  Serious: Yes (Hospitalization)
  Sender: FDA-Public Use
  Company Number: DE-WYE-G05590010

PATIENT
  Sex: Female

DRUGS (1)
  1. TREVILOR RETARD [Suspect]
     Indication: ANXIETY
     Route: 064
     Dates: start: 20061101

REACTIONS (2)
  - FOETAL DISORDER [None]
  - PREMATURE BABY [None]
